FAERS Safety Report 15611710 (Version 1)
Quarter: 2018Q4

REPORT INFORMATION
  Report Type: Spontaneous
  Country: US (occurrence: US)
  Receive Date: 20181113
  Receipt Date: 20181113
  Transmission Date: 20190205
  Serious: Yes (Other)
  Sender: FDA-Public Use
  Company Number: US-AMERIGEN PHARMACEUTICALS, INC-2018AMG000024

PATIENT

DRUGS (1)
  1. TEMOZOLOMIDE UNKNOWN [Suspect]
     Active Substance: TEMOZOLOMIDE
     Indication: ASTROCYTOMA MALIGNANT
     Dosage: UNK
     Route: 065

REACTIONS (2)
  - Pseudomeningocele [Unknown]
  - Disease recurrence [Unknown]
